FAERS Safety Report 9845832 (Version 2)
Quarter: 2014Q1

REPORT INFORMATION
  Report Type: Spontaneous
  Country: US (occurrence: US)
  Receive Date: 20140127
  Receipt Date: 20140212
  Transmission Date: 20141002
  Serious: No
  Sender: FDA-Public Use
  Company Number: US-PFIZER INC-2014023193

PATIENT
  Age: 89 Year
  Sex: Female
  Weight: 68.93 kg

DRUGS (10)
  1. CELEBREX [Suspect]
     Indication: ARTHRITIS
     Dosage: 200 MG, DAILY
  2. RESTASIS [Concomitant]
     Indication: EYE DISORDER
     Dosage: 1 GTT, 2X/DAY
  3. PRESERVISION [Concomitant]
     Indication: EYE DISORDER
     Dosage: 5 MG, 2X/DAY
  4. WARFARIN [Concomitant]
     Indication: CARDIAC DISORDER
     Dosage: AT 5 MG FOR SIX DAYS AND HALF TABLET ON SEVENTH DAY
  5. METOPROLOL SUCCINATE [Concomitant]
     Indication: CARDIAC DISORDER
     Dosage: 25 MG
  6. DIGOXIN [Concomitant]
     Indication: HEART RATE IRREGULAR
     Dosage: UNK
  7. ACCUPRIL [Concomitant]
     Indication: HYPERTENSION
     Dosage: 10 MG
  8. LIPITOR [Concomitant]
     Indication: BLOOD CHOLESTEROL INCREASED
     Dosage: 20 MG, DAILY
  9. LASIX [Concomitant]
     Indication: FLUID RETENTION
     Dosage: 40 MG
  10. ACETAMINOPHEN [Concomitant]
     Dosage: 500 MG, AS NEEDED

REACTIONS (3)
  - Arthritis [Unknown]
  - Tremor [Not Recovered/Not Resolved]
  - Drug ineffective [Unknown]
